FAERS Safety Report 12356639 (Version 1)
Quarter: 2016Q2

REPORT INFORMATION
  Report Type: Spontaneous
  Country: GB (occurrence: GB)
  Receive Date: 20160511
  Receipt Date: 20160511
  Transmission Date: 20160815
  Serious: Yes (Other)
  Sender: FDA-Public Use
  Company Number: GB-TEVA-658085ACC

PATIENT
  Age: 59 Year
  Sex: Female
  Weight: 73 kg

DRUGS (17)
  1. ARTHROTEC [Concomitant]
     Active Substance: DICLOFENAC SODIUM\MISOPROSTOL
  2. GABAPENTIN. [Concomitant]
     Active Substance: GABAPENTIN
  3. KOLANTICON [Concomitant]
  4. SIRDUPLA [Concomitant]
  5. ATORVASTATIN [Suspect]
     Active Substance: ATORVASTATIN
     Dosage: 20 MILLIGRAM DAILY; AT NIGHT
  6. CLOPIDOGREL [Concomitant]
     Active Substance: CLOPIDOGREL BISULFATE
  7. FLUOXETINE [Concomitant]
     Active Substance: FLUOXETINE HYDROCHLORIDE
  8. FULTIUM-D3 [Concomitant]
  9. ATARAX [Concomitant]
     Active Substance: HYDROXYZINE\HYDROXYZINE HYDROCHLORIDE
  10. BUMETANIDE. [Concomitant]
     Active Substance: BUMETANIDE
  11. INDAPAMIDE. [Concomitant]
     Active Substance: INDAPAMIDE
  12. LANSOPRAZOLE. [Concomitant]
     Active Substance: LANSOPRAZOLE
  13. VENTOLIN [Concomitant]
     Active Substance: ALBUTEROL SULFATE
  14. CARMELLOSE SODIUM [Concomitant]
     Active Substance: CARBOXYMETHYLCELLULOSE SODIUM
  15. DIPROBASE [Concomitant]
     Active Substance: CHLOROCRESOL
  16. MOMETASONE [Concomitant]
     Active Substance: MOMETASONE
  17. PRAMIPEXOLE. [Concomitant]
     Active Substance: PRAMIPEXOLE
     Indication: RESTLESS LEGS SYNDROME

REACTIONS (6)
  - Muscle spasms [Not Recovered/Not Resolved]
  - Dizziness [Unknown]
  - Myalgia [Unknown]
  - Nausea [Unknown]
  - Balance disorder [Unknown]
  - Headache [Unknown]

NARRATIVE: CASE EVENT DATE: 20160413
